FAERS Safety Report 8553994-7 (Version None)
Quarter: 2012Q3

REPORT INFORMATION
  Report Type: 
  Country: None (occurrence: None)
  Receive Date: 20120731
  Receipt Date: 20120716
  Transmission Date: 20120928
  Serious: Yes (Other)
  Sender: FDA-Public Use
  Company Number: US-ARROW-2012-12974

PATIENT

DRUGS (4)
  1. PREDNISONE TAB [Suspect]
     Indication: LIVER TRANSPLANT
     Dosage: 20 MG, UNKNOWN
     Route: 064
  2. AZATHIOPRINE [Suspect]
     Indication: LIVER TRANSPLANT
     Dosage: UNK
     Route: 064
  3. TACROLIMUS [Suspect]
     Indication: LIVER TRANSPLANT
     Dosage: UNK
     Route: 064
  4. SIROLIMUS [Suspect]
     Indication: LIVER TRANSPLANT
     Dosage: UNK
     Route: 064

REACTIONS (3)
  - PREMATURE LABOUR [None]
  - EYE DISORDER [None]
  - FOETAL EXPOSURE DURING PREGNANCY [None]
